FAERS Safety Report 9821369 (Version 2)
Quarter: 2014Q1

REPORT INFORMATION
  Report Type: Spontaneous
  Country: US (occurrence: US)
  Receive Date: 20140116
  Receipt Date: 20140116
  Transmission Date: 20141002
  Serious: Yes (Hospitalization)
  Sender: FDA-Public Use
  Company Number: US-GILEAD-2011-0035791

PATIENT
  Age: 63 Year
  Sex: Female

DRUGS (12)
  1. LETAIRIS [Suspect]
     Indication: PULMONARY HYPERTENSION
     Route: 048
     Dates: start: 20091124
  2. TYVASO [Concomitant]
  3. COUMADIN [Concomitant]
     Indication: DEEP VEIN THROMBOSIS
  4. PAXIL [Concomitant]
     Indication: DEPRESSION
  5. VASOTEC [Concomitant]
     Indication: HYPERTENSION
  6. VERAPAMIL SR [Concomitant]
     Indication: ATRIAL FIBRILLATION
  7. LASIX [Concomitant]
     Indication: CARDIAC FAILURE CONGESTIVE
  8. TOPROL XL [Concomitant]
     Indication: HYPERTENSION
  9. TOPROL XL [Concomitant]
     Indication: ATRIAL FIBRILLATION
  10. NEURONTIN [Concomitant]
     Indication: MENIERE^S DISEASE
  11. METFORMIN [Concomitant]
     Indication: DIABETES MELLITUS
  12. KDUR [Concomitant]
     Indication: BLOOD POTASSIUM DECREASED

REACTIONS (1)
  - Fluid overload [Recovering/Resolving]
